FAERS Safety Report 18381869 (Version 1)
Quarter: 2020Q4

REPORT INFORMATION
  Report Type: Spontaneous
  Country: US (occurrence: US)
  Receive Date: 20201013
  Receipt Date: 20201013
  Transmission Date: 20210114
  Serious: Yes (Hospitalization)
  Sender: FDA-Public Use
  Company Number: None

PATIENT
  Age: 30 Year
  Sex: Male
  Weight: 101.7 kg

DRUGS (3)
  1. DIVALPROEX [Concomitant]
     Active Substance: DIVALPROEX SODIUM
  2. RISPERIDONE. [Suspect]
     Active Substance: RISPERIDONE
     Indication: SCHIZOPHRENIA
     Dosage: ?          QUANTITY:1 TABLET(S);?
     Route: 048
  3. TRAZODONE [Concomitant]
     Active Substance: TRAZODONE HYDROCHLORIDE

REACTIONS (11)
  - Delirium [None]
  - Brain oedema [None]
  - Psychotic disorder [None]
  - Dyspnoea [None]
  - Paranoia [None]
  - Tardive dyskinesia [None]
  - Claustrophobia [None]
  - Lip swelling [None]
  - Thirst [None]
  - Insomnia [None]
  - Cerebral haemorrhage [None]

NARRATIVE: CASE EVENT DATE: 20200930
